FAERS Safety Report 12101107 (Version 2)
Quarter: 2016Q2

REPORT INFORMATION
  Report Type: Spontaneous
  Country: US (occurrence: US)
  Receive Date: 20160222
  Receipt Date: 20160503
  Transmission Date: 20160815
  Serious: No
  Sender: FDA-Public Use
  Company Number: US-BAYER-2016-029729

PATIENT
  Age: 86 Year
  Sex: Female
  Weight: 72.56 kg

DRUGS (6)
  1. OSTEO BI-FLEX [Concomitant]
     Active Substance: CHONDROITIN SULFATE A\GLUCOSAMINE
  2. CALCIUM +VIT D [Concomitant]
     Active Substance: CALCIUM\VITAMIN D
  3. TRAMADOL. [Concomitant]
     Active Substance: TRAMADOL
  4. CITRACAL [Concomitant]
     Active Substance: CALCIUM CITRATE
  5. MIRALAX [Suspect]
     Active Substance: POLYETHYLENE GLYCOL 3350
     Indication: CONSTIPATION
     Dosage: BOTTLE COUNT 17.9OZ
     Route: 048
  6. CENTRUM SILVER [Concomitant]
     Active Substance: MINERALS\VITAMINS

REACTIONS (3)
  - Drug ineffective [None]
  - Abnormal faeces [None]
  - Product use issue [None]
